FAERS Safety Report 16298415 (Version 2)
Quarter: 2019Q2

REPORT INFORMATION
  Report Type: Spontaneous
  Country: GB (occurrence: GB)
  Receive Date: 20190510
  Receipt Date: 20190517
  Transmission Date: 20190711
  Serious: Yes (Other)
  Sender: FDA-Public Use
  Company Number: GB-ASTRAZENECA-2019SE68369

PATIENT
  Age: 28893 Day
  Sex: Female

DRUGS (9)
  1. IRESSA [Suspect]
     Active Substance: GEFITINIB
     Indication: EGFR GENE MUTATION
     Route: 048
     Dates: start: 20141024, end: 20160621
  2. TAXOL [Concomitant]
     Active Substance: PACLITAXEL
     Dosage: 6 CYCLES
     Dates: start: 201803, end: 201807
  3. ORAMORPH [Concomitant]
     Active Substance: MORPHINE SULFATE
  4. OXYGEN. [Concomitant]
     Active Substance: OXYGEN
     Dosage: AS REQUIRED
  5. GEM/CARBO CHEMO [Concomitant]
     Dosage: 6 CYCLES
     Dates: start: 201608, end: 201702
  6. THYROXINE [Concomitant]
     Active Substance: LEVOTHYROXINE
  7. IRESSA [Suspect]
     Active Substance: GEFITINIB
     Indication: NON-SMALL CELL LUNG CANCER
     Route: 048
     Dates: start: 20141024, end: 20160621
  8. DOCETAXEL. [Concomitant]
     Active Substance: DOCETAXEL
     Dosage: 3 CYCLES
     Dates: start: 201707, end: 201709
  9. COCODAMOL [Concomitant]
     Active Substance: ACETAMINOPHEN\CODEINE PHOSPHATE

REACTIONS (2)
  - Malignant neoplasm progression [Recovered/Resolved]
  - Lymphadenopathy mediastinal [Unknown]

NARRATIVE: CASE EVENT DATE: 20160721
